FAERS Safety Report 5487688-1 (Version None)
Quarter: 2007Q4

REPORT INFORMATION
  Report Type: 
  Country: None (occurrence: None)
  Receive Date: 20071017
  Receipt Date: 20071009
  Transmission Date: 20080405
  Serious: Yes (Other)
  Sender: FDA-Public Use
  Company Number: PHBS2007GR16928

PATIENT
  Sex: Male

DRUGS (6)
  1. DIOVAN HCT [Suspect]
     Indication: HYPERTENSION
     Route: 048
     Dates: start: 20061101, end: 20061201
  2. MICARDIS HCT [Suspect]
     Indication: HYPERTENSION
     Dates: start: 20061101, end: 20061201
  3. NORVASC [Concomitant]
  4. ISCOVER [Concomitant]
  5. SALOSPIR [Concomitant]
  6. LIPITOR [Concomitant]

REACTIONS (2)
  - HYDROCELE [None]
  - TESTICULAR PAIN [None]
